FAERS Safety Report 6839659-8 (Version None)
Quarter: 2010Q3

REPORT INFORMATION
  Report Type: 
  Country: None (occurrence: None)
  Receive Date: 20100708
  Receipt Date: 20100623
  Transmission Date: 20110219
  Serious: Yes (Hospitalization)
  Sender: FDA-Public Use
  Company Number: 2010001555

PATIENT
  Age: 44 Year
  Sex: Male

DRUGS (11)
  1. ERLOTINIB HYDROCHLORIDE [Suspect]
     Indication: HEPATIC NEOPLASM MALIGNANT
     Dosage: 150 MG, QD, ORAL
     Route: 048
     Dates: start: 20100315, end: 20100323
  2. SORAFENIB [Suspect]
     Indication: HEPATIC NEOPLASM MALIGNANT
     Dosage: 800 MG, QD, ORAL
     Route: 048
     Dates: start: 20100315, end: 20100323
  3. LACTULOSE [Concomitant]
  4. PROPRANOLOL [Concomitant]
  5. RANITIDINE [Concomitant]
  6. SPIRONOLACTONE [Concomitant]
  7. TORSEMIDE [Concomitant]
  8. FERROUS SULFATE TAB [Concomitant]
  9. OBSIDAN (PROPRANOLOL HYDROCHLORIDE) [Concomitant]
  10. OMEPRAZOLE [Concomitant]
  11. DIPYRONE TAB [Concomitant]

REACTIONS (10)
  - ALANINE AMINOTRANSFERASE DECREASED [None]
  - ASPARTATE AMINOTRANSFERASE DECREASED [None]
  - DEHYDRATION [None]
  - DIARRHOEA [None]
  - HYPERKALAEMIA [None]
  - MUCOSAL INFLAMMATION [None]
  - PAIN [None]
  - RENAL FAILURE [None]
  - STOMATITIS [None]
  - ULCER [None]
